FAERS Safety Report 8422561-8 (Version None)
Quarter: 2012Q2

REPORT INFORMATION
  Report Type: 
  Country: None (occurrence: None)
  Receive Date: 20120604
  Receipt Date: 20120518
  Transmission Date: 20120825
  Serious: Yes (Death, Life-Threatening)
  Sender: FDA-Public Use
  Company Number: 2012SGN00146

PATIENT
  Age: 55 Year
  Sex: Male
  Weight: 74.1178 kg

DRUGS (2)
  1. MICAFUNGIN (MICAFUNGIN) [Concomitant]
  2. BRENTUXIMAB VEDOTIN (BRENTUXIMAB VEDOTIN) INJECTION [Suspect]
     Indication: HODGKIN'S DISEASE
     Dosage: 1.2 MG/KG, Q21D, INTRAVENOUS
     Route: 042
     Dates: start: 20120323, end: 20120323

REACTIONS (12)
  - CARDIO-RESPIRATORY ARREST [None]
  - PNEUMONIA CRYPTOCOCCAL [None]
  - ENTEROCOCCUS TEST POSITIVE [None]
  - CRYPTOCOCCAL FUNGAEMIA [None]
  - METABOLIC ACIDOSIS [None]
  - ESCHERICHIA TEST POSITIVE [None]
  - LIVER DISORDER [None]
  - PETECHIAE [None]
  - CONDITION AGGRAVATED [None]
  - ARTERIOSCLEROSIS CORONARY ARTERY [None]
  - SKIN LESION [None]
  - AORTIC ARTERIOSCLEROSIS [None]
